FAERS Safety Report 22039882 (Version 1)
Quarter: 2023Q1

REPORT INFORMATION
  Report Type: Other
  Country: US (occurrence: None)
  Receive Date: 20230227
  Receipt Date: 20230227
  Transmission Date: 20230417
  Serious: Yes (Death)
  Sender: FDA-Public Use
  Company Number: US-ROCHE-3293299

PATIENT
  Age: 78 Year
  Sex: Female

DRUGS (22)
  1. ESBRIET [Suspect]
     Active Substance: PIRFENIDONE
     Indication: Idiopathic pulmonary fibrosis
     Dosage: TAKE 2 CAPSULE(S) BY MOUTH (534MG) 3 TIMES A DAY WITH MEALS
     Route: 048
  2. TYLENOL [Concomitant]
     Active Substance: ACETAMINOPHEN
  3. FOSAMAX [Concomitant]
     Active Substance: ALENDRONATE SODIUM
  4. AMOXIL [Concomitant]
     Active Substance: AMOXICILLIN
  5. VITAMIN C [Concomitant]
     Active Substance: ASCORBIC ACID
  6. LIPITOR [Concomitant]
     Active Substance: ATORVASTATIN CALCIUM
  7. VITAMIN B COMPLEX [Concomitant]
     Active Substance: CYANOCOBALAMIN\DEXPANTHENOL\NIACINAMIDE\PYRIDOXINE HYDROCHLORIDE\RIBOFLAVIN 5^-PHOSPHATE SODIUM\THIA
  8. ALPHAGAN P [Concomitant]
     Active Substance: BRIMONIDINE TARTRATE
  9. LIQUIGEL [Concomitant]
  10. KEFLEX [Concomitant]
     Active Substance: CEPHALEXIN
  11. DEXILANT [Concomitant]
     Active Substance: DEXLANSOPRAZOLE
  12. DIAZEPAM [Concomitant]
     Active Substance: DIAZEPAM
  13. DILTIAZEM [Concomitant]
     Active Substance: DILTIAZEM
  14. COSOPT [Concomitant]
     Active Substance: DORZOLAMIDE HYDROCHLORIDE\TIMOLOL MALEATE
  15. NEURONTIN [Concomitant]
     Active Substance: GABAPENTIN
  16. MOTRIN [Concomitant]
     Active Substance: IBUPROFEN
  17. COZAAR [Concomitant]
     Active Substance: LOSARTAN POTASSIUM
  18. OCUFLOX [Concomitant]
     Active Substance: OFLOXACIN
  19. PROBIOTICS NOS [Concomitant]
     Active Substance: PROBIOTICS NOS
  20. ZOLOFT [Concomitant]
     Active Substance: SERTRALINE HYDROCHLORIDE
  21. TOCOPHEROL [Concomitant]
     Active Substance: TOCOPHEROL
  22. AMBIEN [Concomitant]
     Active Substance: ZOLPIDEM TARTRATE

REACTIONS (1)
  - Death [Fatal]
